FAERS Safety Report 14220222 (Version 1)
Quarter: 2017Q4

REPORT INFORMATION
  Report Type: Spontaneous
  Country: US (occurrence: US)
  Receive Date: 20171123
  Receipt Date: 20171123
  Transmission Date: 20180321
  Serious: No
  Sender: FDA-Public Use
  Company Number: US-JNJFOC-20171010883

PATIENT
  Sex: Female

DRUGS (1)
  1. TOPAMAX [Suspect]
     Active Substance: TOPIRAMATE
     Indication: PRODUCT USED FOR UNKNOWN INDICATION
     Route: 048

REACTIONS (7)
  - Somnolence [Unknown]
  - Muscle twitching [Recovered/Resolved]
  - Fatigue [Unknown]
  - Vertigo [Recovered/Resolved]
  - Cognitive disorder [Recovering/Resolving]
  - Headache [Recovering/Resolving]
  - Paraesthesia [Recovered/Resolved]
